FAERS Safety Report 5519642-5 (Version None)
Quarter: 2007Q4

REPORT INFORMATION
  Report Type: 
  Country: None (occurrence: None)
  Receive Date: 20071114
  Receipt Date: 20071105
  Transmission Date: 20080405
  Serious: Yes (Other)
  Sender: FDA-Public Use
  Company Number: 2007SP022388

PATIENT
  Age: 44 Year
  Sex: Female

DRUGS (3)
  1. PEG-INTRON [Suspect]
     Indication: HEPATITIS C
     Dosage: SC
     Route: 058
     Dates: start: 20070806
  2. RIBAVIRIN [Suspect]
     Indication: HEPATITIS C
     Dosage: PO
     Route: 048
     Dates: start: 20070806
  3. ZOFRAN [Concomitant]

REACTIONS (5)
  - DEHYDRATION [None]
  - FOREIGN BODY TRAUMA [None]
  - MUSCLE SPASMS [None]
  - SECRETION DISCHARGE [None]
  - VOMITING [None]
